FAERS Safety Report 22859470 (Version 6)
Quarter: 2024Q1

REPORT INFORMATION
  Report Type: Report from Study
  Country: US (occurrence: US)
  Receive Date: 20230824
  Receipt Date: 20240308
  Transmission Date: 20240410
  Serious: Yes (Other)
  Sender: FDA-Public Use
  Company Number: US-002147023-NVSC2023US183629

PATIENT

DRUGS (1)
  1. KESIMPTA [Suspect]
     Active Substance: OFATUMUMAB
     Indication: Product used for unknown indication
     Dosage: UNK
     Route: 065
     Dates: start: 20230511

REACTIONS (7)
  - COVID-19 pneumonia [Unknown]
  - Loss of consciousness [Unknown]
  - Pyrexia [Unknown]
  - Throat clearing [Unknown]
  - Balance disorder [Unknown]
  - Dizziness [Unknown]
  - Discomfort [Unknown]
